FAERS Safety Report 4737945-9 (Version None)
Quarter: 2005Q3

REPORT INFORMATION
  Report Type: 
  Country: None (occurrence: None)
  Receive Date: 20050803
  Receipt Date: 20050531
  Transmission Date: 20060218
  Serious: Yes (Hospitalization)
  Sender: FDA-Public Use
  Company Number: 2005081234

PATIENT
  Age: 68 Year
  Sex: Male

DRUGS (2)
  1. NICOTINE [Suspect]
     Indication: NICOTINE DEPENDENCE
     Dosage: 10 MG 4 TIMES, INHALATION
     Route: 055
     Dates: start: 20050519, end: 20050519
  2. NICOTINE GUM (NICOTINE) [Suspect]
     Indication: NICOTINE DEPENDENCE
     Dosage: 4 MG 6 TIMES, ORAL TOPICAL
     Route: 048
     Dates: start: 20050517, end: 20050517

REACTIONS (7)
  - BLOOD PRESSURE DECREASED [None]
  - DRUG TOXICITY [None]
  - HEART RATE INCREASED [None]
  - INTESTINAL HAEMORRHAGE [None]
  - LOSS OF CONSCIOUSNESS [None]
  - SKIN BURNING SENSATION [None]
  - VOMITING [None]
